FAERS Safety Report 6551910-0 (Version None)
Quarter: 2010Q1

REPORT INFORMATION
  Report Type: 
  Country: None (occurrence: None)
  Receive Date: 20100126
  Receipt Date: 20100114
  Transmission Date: 20100710
  Serious: Yes (Other)
  Sender: FDA-Public Use
  Company Number: US-ELI_LILLY_AND_COMPANY-US200911005574

PATIENT
  Sex: Female
  Weight: 85 kg

DRUGS (12)
  1. PROZAC [Suspect]
     Indication: DEPRESSION
     Dosage: 40 MG, 2/D
     Route: 048
     Dates: start: 19830101
  2. NEUROTIN                           /00949202/ [Concomitant]
     Dosage: UNK, UNKNOWN
     Route: 065
  3. SYNTHROID [Concomitant]
     Dosage: UNK, UNKNOWN
     Route: 065
  4. NEXIUM [Concomitant]
     Dosage: UNK, UNKNOWN
     Route: 065
  5. FENTANYL [Concomitant]
     Dosage: UNK, UNKNOWN
     Route: 065
  6. ASACOL [Concomitant]
     Indication: IRRITABLE BOWEL SYNDROME
     Dosage: UNK, UNKNOWN
     Route: 065
  7. KLOR-CON [Concomitant]
     Dosage: UNK, UNKNOWN
     Route: 065
  8. FLEXERIL [Concomitant]
     Dosage: UNK, UNKNOWN
     Route: 065
  9. FOSAMAX [Concomitant]
     Dosage: UNK, UNKNOWN
     Route: 065
  10. VICODIN [Concomitant]
     Dosage: UNK, UNKNOWN
     Route: 065
  11. VALIUM [Concomitant]
     Dosage: UNK, UNKNOWN
     Route: 065
  12. IRON [Concomitant]
     Dosage: UNK, UNKNOWN
     Route: 065

REACTIONS (2)
  - CARCINOID TUMOUR PULMONARY [None]
  - CROHN'S DISEASE [None]
